FAERS Safety Report 8859560 (Version 2)
Quarter: 2012Q4

REPORT INFORMATION
  Report Type: Report from Study
  Country: FR (occurrence: FR)
  Receive Date: 20121025
  Receipt Date: 20121119
  Transmission Date: 20130627
  Serious: Yes (Hospitalization)
  Sender: FDA-Public Use
  Company Number: FR-PFIZER INC-2012248464

PATIENT
  Age: 70 Year
  Sex: Male
  Weight: 65 kg

DRUGS (5)
  1. CRIZOTINIB [Suspect]
     Indication: NON-SMALL CELL LUNG CANCER
     Dosage: 200 mg, 2x/day
     Route: 048
     Dates: start: 20110323
  2. APROVEL [Concomitant]
     Indication: HYPERTENSION ARTERIAL
     Dosage: 300 mg, 1x/day
     Route: 048
  3. LASILIX [Concomitant]
     Indication: HYPERTENSION ARTERIAL
     Dosage: 40 mg, 1x/day
     Route: 048
  4. ATENOLOL [Concomitant]
     Indication: HYPERTENSION ARTERIAL
     Dosage: 25 mg, 1x/day
     Route: 048
  5. FRAXIPARINE [Concomitant]
     Indication: PULMONARY EMBOLISM
     Dosage: 0.6 ml, 1x/day
     Route: 058
     Dates: start: 20110508

REACTIONS (1)
  - Alveolitis [Not Recovered/Not Resolved]
